FAERS Safety Report 8345311-2 (Version None)
Quarter: 2012Q2

REPORT INFORMATION
  Report Type: 
  Country: None (occurrence: None)
  Receive Date: 20120402
  Receipt Date: 20111128
  Transmission Date: 20120825
  Serious: Yes (Other)
  Sender: FDA-Public Use
  Company Number: 310893USA

PATIENT
  Age: 10 Year
  Sex: Male
  Weight: 45.3597 kg

DRUGS (9)
  1. AMPHETAMINE AND DEXTROAMPHETAMINE SALTS [Suspect]
     Indication: ATTENTION DEFICIT/HYPERACTIVITY DISORDER
     Dosage: (10 MG)
  2. RISPERIDONE [Suspect]
     Indication: AFFECTIVE DISORDER
  3. RISPERIDONE [Suspect]
     Indication: ANXIETY DISORDER
  4. SERTRALINE HYDROCHLORIDE [Concomitant]
  5. TRAZODONE HCL [Concomitant]
  6. ARIPIPRAZOLE [Suspect]
     Indication: AFFECTIVE DISORDER
  7. ARIPIPRAZOLE [Suspect]
     Indication: ANXIETY DISORDER
  8. METHYLPHENIDATE HCL [Concomitant]
  9. GUANFACINE HYDROCHLORIDE [Concomitant]

REACTIONS (2)
  - HALLUCINATION [None]
  - AGGRESSION [None]
